FAERS Safety Report 17775081 (Version 6)
Quarter: 2020Q4

REPORT INFORMATION
  Report Type: Report from Study
  Country: US (occurrence: US)
  Receive Date: 20200513
  Receipt Date: 20201126
  Transmission Date: 20210113
  Serious: No
  Sender: FDA-Public Use
  Company Number: NVSC2020US130133

PATIENT
  Sex: Female

DRUGS (1)
  1. ZOLGENSMA [Suspect]
     Active Substance: ONASEMNOGENE ABEPARVOVEC-XIOI
     Indication: SPINAL MUSCULAR ATROPHY
     Dosage: UNK, ONCE/SINGLE
     Route: 042
     Dates: start: 20200506, end: 20200506

REACTIONS (9)
  - Dysphagia [Recovering/Resolving]
  - Diarrhoea [Unknown]
  - Constipation [Recovered/Resolved]
  - Decreased appetite [Unknown]
  - Rhinorrhoea [Recovered/Resolved]
  - Vomiting [Unknown]
  - Irritability [Unknown]
  - Cough [Recovering/Resolving]
  - Feeling abnormal [Unknown]
